FAERS Safety Report 5474194-3 (Version None)
Quarter: 2007Q3

REPORT INFORMATION
  Report Type: 
  Country: None (occurrence: None)
  Receive Date: 20070928
  Receipt Date: 20070922
  Transmission Date: 20080115
  Serious: Yes (Other)
  Sender: FDA-Public Use
  Company Number: CHPA2007US09958

PATIENT
  Sex: Male

DRUGS (2)
  1. FERROUS SULFATE TAB [Suspect]
     Indication: BLOOD IRON
     Dosage: ORAL
     Route: 048
     Dates: start: 20070901
  2. INSULIN [Suspect]

REACTIONS (2)
  - BLOOD GLUCOSE DECREASED [None]
  - DIZZINESS [None]
